FAERS Safety Report 22645031 (Version 1)
Quarter: 2023Q2

REPORT INFORMATION
  Report Type: Spontaneous
  Country: TR (occurrence: TR)
  Receive Date: 20230627
  Receipt Date: 20230627
  Transmission Date: 20230721
  Serious: Yes (Death, Other)
  Sender: FDA-Public Use
  Company Number: TR-AMGEN-TURSP2023107769

PATIENT
  Sex: Female

DRUGS (2)
  1. BEVACIZUMAB [Suspect]
     Active Substance: BEVACIZUMAB
     Indication: Ovarian cancer recurrent
     Dosage: UNK
     Route: 065
  2. DOXORUBICIN [Concomitant]
     Active Substance: DOXORUBICIN

REACTIONS (2)
  - Death [Fatal]
  - Ovarian cancer [Unknown]
